FAERS Safety Report 11521194 (Version 5)
Quarter: 2016Q2

REPORT INFORMATION
  Report Type: Report from Study
  Country: US (occurrence: US)
  Receive Date: 20150918
  Receipt Date: 20160516
  Transmission Date: 20160815
  Serious: Yes (Hospitalization)
  Sender: FDA-Public Use
  Company Number: US-MALLINCKRODT-T201503173

PATIENT
  Age: 41 Year
  Sex: Female
  Weight: 124 kg

DRUGS (6)
  1. REPOSITORY CORTICOTROPIN INJECTION [Suspect]
     Active Substance: CORTICOTROPIN
     Dosage: 40 UNITS TWICE WKLY
     Route: 030
     Dates: start: 20150914
  2. WARFARIN [Concomitant]
     Active Substance: WARFARIN
  3. PREDNISONE. [Suspect]
     Active Substance: PREDNISONE
     Indication: PRODUCT USED FOR UNKNOWN INDICATION
     Dosage: UNK
     Route: 065
  4. REPOSITORY CORTICOTROPIN INJECTION [Suspect]
     Active Substance: CORTICOTROPIN
     Dosage: 40 UNITS TWICE WKLY
     Route: 030
     Dates: end: 20150903
  5. REPOSITORY CORTICOTROPIN INJECTION [Suspect]
     Active Substance: CORTICOTROPIN
     Indication: SARCOIDOSIS
     Dosage: 80 UNITS TWICE A WEEK
     Route: 030
     Dates: start: 20150611
  6. REPOSITORY CORTICOTROPIN INJECTION [Suspect]
     Active Substance: CORTICOTROPIN
     Dosage: 40 UNITS TWICE WKLY
     Route: 058

REACTIONS (12)
  - Injection site bruising [Not Recovered/Not Resolved]
  - Malaise [Recovered/Resolved]
  - Drug dose omission [Recovered/Resolved]
  - Decreased appetite [Unknown]
  - Depression [Recovering/Resolving]
  - Migraine [Recovered/Resolved]
  - Arthralgia [Unknown]
  - Pneumonia [Recovered/Resolved]
  - Dehydration [Recovered/Resolved]
  - Hypotension [Recovered/Resolved]
  - Fatigue [Recovered/Resolved]
  - Myalgia [Recovered/Resolved]

NARRATIVE: CASE EVENT DATE: 201506
